FAERS Safety Report 24346516 (Version 1)
Quarter: 2024Q3

REPORT INFORMATION
  Report Type: Report from Study
  Country: CN (occurrence: CN)
  Receive Date: 20240921
  Receipt Date: 20240921
  Transmission Date: 20241017
  Serious: Yes (Death)
  Sender: ROCHE
  Company Number: CN-ROCHE-10000005962

PATIENT
  Age: 82 Year
  Sex: Male

DRUGS (1)
  1. COLUMVI [Suspect]
     Active Substance: GLOFITAMAB-GXBM
     Indication: Diffuse large B-cell lymphoma
     Route: 042
     Dates: start: 20240304

REACTIONS (2)
  - Haemoglobin decreased [Unknown]
  - Haemolysis [Fatal]
